FAERS Safety Report 8105176-0 (Version None)
Quarter: 2012Q1

REPORT INFORMATION
  Report Type: 
  Country: None (occurrence: None)
  Receive Date: 20120201
  Receipt Date: 20120129
  Transmission Date: 20120608
  Serious: No
  Sender: FDA-Public Use
  Company Number: US-PFIZER INC-2012024201

PATIENT
  Sex: Female
  Weight: 68.027 kg

DRUGS (2)
  1. CHANTIX [Suspect]
     Dosage: UNK
     Route: 048
     Dates: start: 20120129
  2. CHANTIX [Suspect]
     Dosage: 0.5 MG DAILY
     Route: 048
     Dates: start: 20120116, end: 20120124

REACTIONS (2)
  - MALAISE [None]
  - NAUSEA [None]
